FAERS Safety Report 9746030 (Version 2)
Quarter: 2013Q4

REPORT INFORMATION
  Report Type: Spontaneous
  Country: IT (occurrence: None)
  Receive Date: 20131205
  Receipt Date: 20131220
  Transmission Date: 20140711
  Serious: Yes (Other)
  Sender: FDA-Public Use
  Company Number: AUR-APL-2013-10079

PATIENT
  Age: 57 Year
  Sex: Female

DRUGS (4)
  1. RAMIPRIL [Suspect]
     Indication: HYPERTENSION
     Route: 048
     Dates: end: 20130927
  2. TOLEP [Suspect]
     Indication: BIPOLAR DISORDER
     Route: 048
     Dates: end: 20130927
  3. LEXOTAN (BROMAZEPAM) [Concomitant]
  4. ZYPREXA (OLANZAPINE) [Concomitant]

REACTIONS (3)
  - Hyponatraemia [None]
  - Balance disorder [None]
  - Hypoaesthesia [None]
